FAERS Safety Report 4693004-5 (Version None)
Quarter: 2005Q2

REPORT INFORMATION
  Report Type: 
  Country: None (occurrence: None)
  Receive Date: 20050615
  Receipt Date: 20050601
  Transmission Date: 20051028
  Serious: Yes (Disabling)
  Sender: FDA-Public Use
  Company Number: 200502861

PATIENT
  Age: 44 Year
  Sex: Female
  Weight: 68.0396 kg

DRUGS (1)
  1. BOTOX COSMETIC [Suspect]
     Indication: SKIN WRINKLING
     Dosage: 30 UNITS PRN IM
     Route: 030
     Dates: start: 20050330

REACTIONS (4)
  - DEAFNESS UNILATERAL [None]
  - EAR INFECTION VIRAL [None]
  - POST PROCEDURAL COMPLICATION [None]
  - TINNITUS [None]
